FAERS Safety Report 8193475-6 (Version None)
Quarter: 2012Q1

REPORT INFORMATION
  Report Type: 
  Country: None (occurrence: None)
  Receive Date: 20120308
  Receipt Date: 20120305
  Transmission Date: 20120608
  Serious: Yes (Other)
  Sender: FDA-Public Use
  Company Number: US-PFIZER INC-2011088028

PATIENT
  Sex: Female
  Weight: 63.492 kg

DRUGS (6)
  1. CHANTIX [Suspect]
     Dosage: UNK
  2. KLONOPIN [Concomitant]
     Indication: SLEEP DISORDER
     Dosage: UNK
  3. KLONOPIN [Concomitant]
     Indication: ANXIETY
  4. CHANTIX [Suspect]
     Dosage: UNK
     Dates: start: 20120305
  5. CHANTIX [Suspect]
     Indication: SMOKING CESSATION THERAPY
     Dosage: 0.5 MG, 1X/DAY
     Route: 048
     Dates: start: 20110417, end: 20110401
  6. CHANTIX [Suspect]
     Dosage: 0.5 MG, 2X/DAY
     Route: 048
     Dates: start: 20110401

REACTIONS (9)
  - NEOPLASM MALIGNANT [None]
  - ABNORMAL BEHAVIOUR [None]
  - HOSTILITY [None]
  - MALAISE [None]
  - DEPRESSED MOOD [None]
  - HOT FLUSH [None]
  - NAUSEA [None]
  - SUICIDAL IDEATION [None]
  - AGITATION [None]
